FAERS Safety Report 20357234 (Version 1)
Quarter: 2022Q1

REPORT INFORMATION
  Report Type: Spontaneous
  Country: US (occurrence: None)
  Receive Date: 20220120
  Receipt Date: 20220120
  Transmission Date: 20220423
  Serious: Yes (Other)
  Sender: FDA-Public Use
  Company Number: 2022A026765

PATIENT
  Age: 85 Year
  Sex: Male

DRUGS (10)
  1. NEXIUM [Interacting]
     Active Substance: ESOMEPRAZOLE MAGNESIUM
     Route: 048
  2. FERROUS SULFATE [Interacting]
     Active Substance: FERROUS SULFATE
     Indication: Iron deficiency anaemia
     Route: 065
  3. ASPIRIN [Concomitant]
     Active Substance: ASPIRIN
     Indication: Cardiac failure
     Route: 065
  4. CREATININE [Concomitant]
     Active Substance: CREATININE
     Route: 065
  5. HYDRALAZINE [Concomitant]
     Active Substance: HYDRALAZINE HYDROCHLORIDE
     Indication: Hypertension
     Route: 065
  6. IRON [Concomitant]
     Active Substance: IRON
     Route: 065
  7. SULFUR [Concomitant]
     Active Substance: SULFUR
     Route: 065
  8. AMLODIPINE [Concomitant]
     Active Substance: AMLODIPINE BESYLATE
     Indication: Hypertension
     Route: 065
  9. NORVASC [Concomitant]
     Active Substance: AMLODIPINE BESYLATE
     Route: 065
  10. LOSARTAN [Concomitant]
     Active Substance: LOSARTAN
     Indication: Hypertension
     Route: 065

REACTIONS (1)
  - Gastrointestinal tract mucosal pigmentation [Unknown]
